FAERS Safety Report 4339867-4 (Version None)
Quarter: 2004Q2

REPORT INFORMATION
  Report Type: 
  Country: None (occurrence: None)
  Receive Date: 20040412
  Receipt Date: 20030724
  Transmission Date: 20050107
  Serious: Yes (Other)
  Sender: FDA-Public Use
  Company Number: DE-JNJFOC-20030706434

PATIENT
  Age: 90 Year
  Sex: Male

DRUGS (2)
  1. RISPERDAL [Suspect]
     Indication: DRUG USE FOR UNKNOWN INDICATION
     Dosage: 3 MG, 1 IN 1 DAY, ORAL
     Route: 048
  2. MIRTAZAPINE [Concomitant]

REACTIONS (1)
  - LEUKOPENIA [None]
